FAERS Safety Report 21572802 (Version 5)
Quarter: 2023Q1

REPORT INFORMATION
  Report Type: Spontaneous
  Country: JP (occurrence: JP)
  Receive Date: 20221109
  Receipt Date: 20230330
  Transmission Date: 20230418
  Serious: Yes (Death, Hospitalization)
  Sender: FDA-Public Use
  Company Number: A202200784-001

PATIENT
  Age: 78 Year
  Sex: Female
  Weight: 36 kg

DRUGS (6)
  1. BENDAMUSTINE HYDROCHLORIDE [Suspect]
     Active Substance: BENDAMUSTINE HYDROCHLORIDE
     Indication: Extranodal marginal zone B-cell lymphoma (MALT type)
     Dosage: 90 MG/M2, CYCLE 1 BR THERAPY
     Route: 042
     Dates: start: 20220803
  2. BENDAMUSTINE HYDROCHLORIDE [Suspect]
     Active Substance: BENDAMUSTINE HYDROCHLORIDE
     Dosage: 90 MG/M2, CYCLE 2 BR THERAPY
     Route: 042
     Dates: start: 20220914
  3. BENDAMUSTINE HYDROCHLORIDE [Suspect]
     Active Substance: BENDAMUSTINE HYDROCHLORIDE
     Dosage: 90 MG/M2, CYCLE 3 BR THERAPY
     Route: 042
     Dates: start: 2022
  4. RITUXAN [Concomitant]
     Active Substance: RITUXIMAB
     Indication: Extranodal marginal zone B-cell lymphoma (MALT type)
     Dosage: UNK, CYCLE 1 BR THERAPY
     Route: 042
     Dates: start: 20220803
  5. RITUXAN [Concomitant]
     Active Substance: RITUXIMAB
     Dosage: UNK, CYCLE 2 BR THERAPY
     Route: 042
     Dates: start: 20220914
  6. RITUXAN [Concomitant]
     Active Substance: RITUXIMAB
     Dosage: UNK, CYCLE 3 BR THERAPY
     Route: 042
     Dates: start: 20221019

REACTIONS (4)
  - Lymphoma [Fatal]
  - COVID-19 [Recovering/Resolving]
  - Interstitial lung disease [Recovering/Resolving]
  - Bronchopulmonary aspergillosis [Recovering/Resolving]

NARRATIVE: CASE EVENT DATE: 20220101
